FAERS Safety Report 12936501 (Version 5)
Quarter: 2018Q4

REPORT INFORMATION
  Report Type: Spontaneous
  Country: FR (occurrence: FR)
  Receive Date: 20161114
  Receipt Date: 20181220
  Transmission Date: 20190204
  Serious: Yes (Disabling, Other)
  Sender: FDA-Public Use
  Company Number: FR-SA-2016SA203100

PATIENT
  Age: 70 Year
  Sex: Male

DRUGS (6)
  1. ISONIAZIDE [Concomitant]
     Active Substance: ISONIAZID
     Indication: PRODUCT USED FOR UNKNOWN INDICATION
     Dosage: UNK
  2. MOXIFLOXACIN. [Suspect]
     Active Substance: MOXIFLOXACIN
     Indication: MYCOBACTERIAL INFECTION
     Dosage: UNK UNK,UNK
     Route: 065
  3. BCG FOR IMMUNOTHERAPY [Suspect]
     Active Substance: BACILLUS CALMETTE-GUERIN ANTIGEN, UNSPECIFIED SUBSTRAIN
     Indication: BLADDER CANCER
     Dosage: UNK UNK,UNK
     Route: 043
     Dates: start: 201304, end: 201304
  4. BCG FOR IMMUNOTHERAPY [Suspect]
     Active Substance: BACILLUS CALMETTE-GUERIN ANTIGEN, UNSPECIFIED SUBSTRAIN
     Dosage: UNK UNK,UNK
     Route: 043
     Dates: start: 201305, end: 201305
  5. RIFAMPICIN [Concomitant]
     Active Substance: RIFAMPIN
     Indication: MYCOBACTERIAL INFECTION
     Dosage: UNK
  6. ETHAMBUTOL [Concomitant]
     Active Substance: ETHAMBUTOL HYDROCHLORIDE
     Indication: MYCOBACTERIAL INFECTION
     Dosage: UNK

REACTIONS (8)
  - Mass [Recovering/Resolving]
  - Walking disability [Recovering/Resolving]
  - Bone deformity [Recovering/Resolving]
  - Osteolysis [Recovering/Resolving]
  - Pain in extremity [Recovered/Resolved]
  - Arthritis infective [Unknown]
  - Bone tuberculosis [Recovering/Resolving]
  - Encephalopathy [Unknown]

NARRATIVE: CASE EVENT DATE: 201409
